FAERS Safety Report 25964383 (Version 1)
Quarter: 2025Q4

REPORT INFORMATION
  Report Type: Report from Study
  Country: CN (occurrence: CN)
  Receive Date: 20251027
  Receipt Date: 20251027
  Transmission Date: 20260118
  Serious: Yes (Other)
  Sender: NOVARTIS
  Company Number: CN-002147023-NVSC2024CN183961

PATIENT
  Age: 65 Year
  Sex: Female

DRUGS (7)
  1. LEQVIO [Suspect]
     Active Substance: INCLISIRAN SODIUM
     Indication: Hyperlipidaemia
     Dosage: 1 DOSAGE FORM
     Route: 058
     Dates: start: 20240612, end: 20240612
  2. LEQVIO [Suspect]
     Active Substance: INCLISIRAN SODIUM
     Dosage: 1 DOSAGE FORM
     Route: 058
     Dates: start: 20240911, end: 20240911
  3. LEQVIO [Suspect]
     Active Substance: INCLISIRAN SODIUM
     Dosage: 1 DOSAGE FORM
     Route: 058
     Dates: start: 20250312, end: 20250312
  4. LEQVIO [Suspect]
     Active Substance: INCLISIRAN SODIUM
     Dosage: 1 DOSAGE FORM
     Route: 058
     Dates: start: 20250415, end: 20250415
  5. LEQVIO [Suspect]
     Active Substance: INCLISIRAN SODIUM
     Dosage: 1 DOSAGE FORM
     Route: 058
  6. LIPITOR [Concomitant]
     Active Substance: ATORVASTATIN CALCIUM
     Indication: Hyperlipidaemia
     Dosage: 1 DOSAGE FORM, QD
     Route: 048
  7. GINKGO BILOBA LEAF EXTRACT [Concomitant]
     Active Substance: GINKGO BILOBA LEAF EXTRACT
     Indication: Product used for unknown indication
     Dosage: 1 DOSAGE FORM, TID
     Route: 065

REACTIONS (9)
  - Carotid arteriosclerosis [Unknown]
  - Drug ineffective [Unknown]
  - Injection site rash [Recovered/Resolved]
  - Injection site erythema [Recovering/Resolving]
  - Injection site swelling [Recovered/Resolved]
  - Injection site swelling [Recovering/Resolving]
  - Injection site pruritus [Recovered/Resolved]
  - Injection site warmth [Recovered/Resolved]
  - Low density lipoprotein increased [Not Recovered/Not Resolved]

NARRATIVE: CASE EVENT DATE: 20240101
